FAERS Safety Report 24794640 (Version 1)
Quarter: 2024Q4

REPORT INFORMATION
  Report Type: Spontaneous
  Country: US (occurrence: US)
  Receive Date: 20241231
  Receipt Date: 20241231
  Transmission Date: 20250114
  Serious: Yes (Hospitalization, Other)
  Sender: CHURCH & DWIGHT
  Company Number: US-ChurchDwight-2024-CDW-02242

PATIENT
  Age: 56 Year
  Sex: Female

DRUGS (3)
  1. ORAJEL 4X MEDICATED PM FOR TOOTHACHE AND GUM [Suspect]
     Active Substance: BENZALKONIUM CHLORIDE\BENZOCAINE\MENTHOL\ZINC CHLORIDE
     Indication: Toothache
     Dosage: AS NEEDED
     Route: 061
  2. ZYRTEC [Concomitant]
     Active Substance: CETIRIZINE HYDROCHLORIDE
     Indication: Hypersensitivity
     Dosage: (ALMOST DAILY SINCE 2010)
     Route: 065
     Dates: start: 2010
  3. BENADRYL [Concomitant]
     Active Substance: DIPHENHYDRAMINE HYDROCHLORIDE
     Indication: Product used for unknown indication
     Dosage: AS NEEDED, DURING THE PAST WEEK
     Route: 050

REACTIONS (15)
  - Gingival swelling [Not Recovered/Not Resolved]
  - Gingival pain [Not Recovered/Not Resolved]
  - Gingival discomfort [Not Recovered/Not Resolved]
  - Throat irritation [Not Recovered/Not Resolved]
  - Mouth swelling [Not Recovered/Not Resolved]
  - Oral pain [Not Recovered/Not Resolved]
  - Stomatitis [Not Recovered/Not Resolved]
  - Swelling face [Not Recovered/Not Resolved]
  - Facial pain [Not Recovered/Not Resolved]
  - Skin irritation [Not Recovered/Not Resolved]
  - Loss of personal independence in daily activities [Not Recovered/Not Resolved]
  - Sepsis [Not Recovered/Not Resolved]
  - Cellulitis [Not Recovered/Not Resolved]
  - Hypersensitivity [Not Recovered/Not Resolved]
  - Salivary hypersecretion [Not Recovered/Not Resolved]
